FAERS Safety Report 22530678 (Version 1)
Quarter: 2023Q2

REPORT INFORMATION
  Report Type: Spontaneous
  Country: GR (occurrence: GR)
  Receive Date: 20230607
  Receipt Date: 20230607
  Transmission Date: 20230722
  Serious: Yes (Hospitalization, Other)
  Sender: FDA-Public Use
  Company Number: GR-009507513-2306GRC002275

PATIENT
  Age: 74 Year
  Sex: Female

DRUGS (1)
  1. PEMBROLIZUMAB [Suspect]
     Active Substance: PEMBROLIZUMAB
     Indication: Non-small cell lung cancer stage III
     Dosage: UNK, CYCLICAL

REACTIONS (6)
  - Stress cardiomyopathy [Recovered/Resolved]
  - Cardiogenic shock [Unknown]
  - Immune-mediated hepatitis [Unknown]
  - Stress cardiomyopathy [Recovered/Resolved]
  - Skin toxicity [Unknown]
  - Product use issue [Unknown]
